FAERS Safety Report 21133585 (Version 1)
Quarter: 2022Q3

REPORT INFORMATION
  Report Type: Spontaneous
  Country: US (occurrence: None)
  Receive Date: 20220726
  Receipt Date: 20220726
  Transmission Date: 20221027
  Serious: Yes (Hospitalization)
  Sender: FDA-Public Use
  Company Number: None

PATIENT
  Age: 62 Year
  Sex: Female

DRUGS (6)
  1. COSENTYX [Suspect]
     Active Substance: SECUKINUMAB
     Indication: Psoriatic arthropathy
     Dosage: INJECT 300 MG (2 ML/ TWO PENS) UNDER THE SKIN (SUBCUTANEOUS INJECTION) EVERY FOUR WEEKS IN THE ABDO
     Route: 058
     Dates: start: 20181120
  2. ASPIRIN CHW [Concomitant]
  3. GABAPENTIN [Concomitant]
     Active Substance: GABAPENTIN
  4. LISINOPRIL [Concomitant]
     Active Substance: LISINOPRIL
  5. PLAVIX TAB [Concomitant]
  6. TOPROL XL TAB [Concomitant]

REACTIONS (2)
  - Myocardial infarction [None]
  - Therapy interrupted [None]

NARRATIVE: CASE EVENT DATE: 20220501
